FAERS Safety Report 17430301 (Version 1)
Quarter: 2020Q1

REPORT INFORMATION
  Report Type: Spontaneous
  Country: US (occurrence: US)
  Receive Date: 20200216
  Receipt Date: 20200216
  Transmission Date: 20200409
  Serious: Yes (Disabling, Other)
  Sender: FDA-Public Use
  Company Number: None

PATIENT
  Age: 37 Year
  Sex: Female
  Weight: 67.5 kg

DRUGS (1)
  1. CIPROFLOXACIN. [Suspect]
     Active Substance: CIPROFLOXACIN
     Indication: URINARY TRACT INFECTION
     Dosage: ?          QUANTITY:1 TABLET(S);?
     Route: 048
     Dates: start: 20160516, end: 20160524

REACTIONS (10)
  - Tendonitis [None]
  - Anxiety [None]
  - Disorientation [None]
  - Dizziness [None]
  - Arthralgia [None]
  - Memory impairment [None]
  - Arrhythmia [None]
  - Ligament sprain [None]
  - Neuropathy peripheral [None]
  - Palpitations [None]

NARRATIVE: CASE EVENT DATE: 20160615
